FAERS Safety Report 6626367-1 (Version None)
Quarter: 2010Q1

REPORT INFORMATION
  Report Type: 
  Country: None (occurrence: None)
  Receive Date: 20100310
  Receipt Date: 20091021
  Transmission Date: 20100710
  Serious: No
  Sender: FDA-Public Use
  Company Number: US-ABBOTT-09P-163-0604634-00

PATIENT
  Sex: Female

DRUGS (3)
  1. LUPRON DEPOT [Suspect]
     Indication: ENDOMETRIOSIS
     Dates: start: 20090915
  2. NORCO [Concomitant]
     Indication: PAIN
  3. LEXAPRO [Concomitant]
     Indication: DEPRESSION

REACTIONS (1)
  - INCORRECT DRUG DOSAGE FORM ADMINISTERED [None]
